FAERS Safety Report 6034748-2 (Version None)
Quarter: 2009Q1

REPORT INFORMATION
  Report Type: 
  Country: None (occurrence: None)
  Receive Date: 20090112
  Receipt Date: 20090105
  Transmission Date: 20090719
  Serious: Yes (Other)
  Sender: FDA-Public Use
  Company Number: US-JNJFOC-20090100975

PATIENT
  Age: 23 Year
  Sex: Female
  Weight: 47.63 kg

DRUGS (1)
  1. TYLENOL COLD MULTI-SYMPTOM DAYTIME COOL BURST [Suspect]
     Indication: NASOPHARYNGITIS
     Route: 048

REACTIONS (4)
  - ABDOMINAL PAIN [None]
  - EXPIRED DRUG ADMINISTERED [None]
  - HAEMORRHAGE [None]
  - VOMITING [None]
